FAERS Safety Report 10147168 (Version 2)
Quarter: 2014Q2

REPORT INFORMATION
  Report Type: Spontaneous
  Country: IT (occurrence: IT)
  Receive Date: 20140501
  Receipt Date: 20140501
  Transmission Date: 20141212
  Serious: Yes (Hospitalization)
  Sender: FDA-Public Use
  Company Number: PHHY2014IT026437

PATIENT
  Age: 70 Year
  Sex: Male

DRUGS (7)
  1. ALLOPURINOL [Suspect]
     Dosage: 1 DF, QD
     Route: 048
     Dates: start: 20130201, end: 20130320
  2. TEVAGRASTIM [Suspect]
     Indication: NEUTROPENIA
     Dosage: 1 DF, QD
     Route: 058
     Dates: start: 20130316, end: 20130320
  3. ARANESP [Suspect]
     Indication: ANAEMIA
     Dosage: 1 DF, QD
     Route: 058
     Dates: start: 20130312, end: 20130320
  4. MABTHERA [Concomitant]
     Indication: CHRONIC LYMPHOCYTIC LEUKAEMIA
     Dosage: 690 MG, UNK
     Route: 042
     Dates: start: 20140131
  5. FLUDARA [Concomitant]
     Indication: CHRONIC LYMPHOCYTIC LEUKAEMIA
     Dosage: 111 MG, UNK
     Route: 042
     Dates: start: 20140131
  6. BACTRIM [Concomitant]
  7. CYCLOPHOSPHAMIDE [Concomitant]
     Dosage: 750 U, UNK
     Route: 042
     Dates: start: 20140131

REACTIONS (1)
  - Lichenoid keratosis [Recovering/Resolving]
